FAERS Safety Report 17278873 (Version 1)
Quarter: 2020Q1

REPORT INFORMATION
  Report Type: Spontaneous
  Country: US (occurrence: US)
  Receive Date: 20200116
  Receipt Date: 20200116
  Transmission Date: 20200409
  Serious: Yes (Hospitalization)
  Sender: FDA-Public Use
  Company Number: US-BAUSCH-BL-2020-000858

PATIENT
  Age: 12 Year
  Sex: Male

DRUGS (8)
  1. ALBUTEROL. [Suspect]
     Active Substance: ALBUTEROL
     Indication: ASTHMA
     Dosage: CONTINUOUS NEBULIZATION/CONTINUOUS ALBUTEROL SOLUTION; INITIAL DOSE
     Route: 065
  2. IPRATROPIUM [Concomitant]
     Active Substance: IPRATROPIUM
     Dosage: ESCALATED DOSE
  3. MAGNESIUM [Concomitant]
     Active Substance: MAGNESIUM
     Indication: ASTHMA
     Dosage: INITIAL DOSE
  4. ALBUTEROL. [Suspect]
     Active Substance: ALBUTEROL
     Dosage: CONTINUOUS NEBULIZATION/CONTINUOUS ALBUTEROL SOLUTION; ESCALATED DOSE
     Route: 065
  5. BENZALKONIUM CHLORIDE. [Suspect]
     Active Substance: BENZALKONIUM CHLORIDE
     Indication: ASTHMA
     Dosage: EXCIPIENT; INITIAL DOSE
     Route: 065
  6. BENZALKONIUM CHLORIDE. [Suspect]
     Active Substance: BENZALKONIUM CHLORIDE
     Dosage: EXCIPIENT; ESCALATED DOSE
     Route: 065
  7. IPRATROPIUM [Concomitant]
     Active Substance: IPRATROPIUM
     Indication: ASTHMA
     Dosage: INITIAL DOSE
  8. MAGNESIUM [Concomitant]
     Active Substance: MAGNESIUM
     Dosage: ESCALATED DOSE

REACTIONS (3)
  - Bronchospasm [Unknown]
  - Hypercapnia [Unknown]
  - Respiratory failure [Unknown]
